FAERS Safety Report 7775840-1 (Version None)
Quarter: 2011Q3

REPORT INFORMATION
  Report Type: 
  Country: None (occurrence: None)
  Receive Date: 20110923
  Receipt Date: 20110920
  Transmission Date: 20111222
  Serious: Yes (Hospitalization, Other)
  Sender: FDA-Public Use
  Company Number: US-PFIZER INC-2011223364

PATIENT
  Sex: Female
  Weight: 70.295 kg

DRUGS (7)
  1. CYMBALTA [Concomitant]
     Dosage: 60 MG, 2X/DAY
  2. DIOVAN [Concomitant]
     Indication: HYPERTENSION
     Dosage: 320 MG DAILY
  3. LASIX [Concomitant]
     Dosage: 25 MG DAILY
  4. ALBUTEROL [Concomitant]
     Dosage: UNK, 3X/DAY
  5. TOPROL-XL [Concomitant]
     Indication: HYPERTENSION
     Dosage: 100 MG DAILY
  6. OXYCODONE [Concomitant]
     Dosage: 20 MG, 8X/DAY
  7. CHANTIX [Suspect]
     Indication: SMOKING CESSATION THERAPY
     Dosage: UNK
     Dates: start: 20080101

REACTIONS (2)
  - CEREBROVASCULAR ACCIDENT [None]
  - CAROTID ARTERY OCCLUSION [None]
